FAERS Safety Report 4490971-X (Version None)
Quarter: 2004Q3

REPORT INFORMATION
  Report Type: 
  Country: None (occurrence: None)
  Receive Date: 20040927
  Receipt Date: 20040809
  Transmission Date: 20050211
  Serious: No
  Sender: FDA-Public Use
  Company Number: USA040874927

PATIENT
  Age: 42 Year
  Sex: Male
  Weight: 93 kg

DRUGS (1)
  1. STRATTERA [Suspect]
     Indication: ATTENTION DEFICIT/HYPERACTIVITY DISORDER
     Dosage: 80 MG/1 DAY
     Dates: start: 20040201

REACTIONS (5)
  - DIZZINESS [None]
  - FALL [None]
  - STOMACH DISCOMFORT [None]
  - SUTURE INSERTION [None]
  - UPPER LIMB FRACTURE [None]
